FAERS Safety Report 6450203-X (Version None)
Quarter: 2009Q4

REPORT INFORMATION
  Report Type: 
  Country: None (occurrence: None)
  Receive Date: 20091123
  Receipt Date: 20091021
  Transmission Date: 20100525
  Serious: No
  Sender: FDA-Public Use
  Company Number: US-BAYER-200924260NA

PATIENT
  Age: 25 Year
  Sex: Female

DRUGS (1)
  1. YAZ [Suspect]
     Indication: CONTRACEPTION
     Route: 048
     Dates: start: 20090401

REACTIONS (4)
  - ABDOMINAL PAIN LOWER [None]
  - METRORRHAGIA [None]
  - NAUSEA [None]
  - NO ADVERSE EVENT [None]
